FAERS Safety Report 8474998-9 (Version None)
Quarter: 2012Q2

REPORT INFORMATION
  Report Type: 
  Country: None (occurrence: None)
  Receive Date: 20120628
  Receipt Date: 20120619
  Transmission Date: 20120825
  Serious: Yes (Hospitalization, Other)
  Sender: FDA-Public Use
  Company Number: US-BAYER-2012-042323

PATIENT
  Age: 19 Year
  Sex: Female
  Weight: 84 kg

DRUGS (9)
  1. DIFFERIN [Concomitant]
     Dosage: 0.3 %, UNK
  2. YAZ [Suspect]
     Indication: ACNE
     Dosage: UNK
     Dates: start: 20080325, end: 20081029
  3. YASMIN [Suspect]
  4. SODIUM SULFACETAMIDE [Concomitant]
  5. GLYCOLIC ACID [Concomitant]
  6. SPIRONOLACTONE [Concomitant]
  7. ACETAMINOPHEN [Concomitant]
     Indication: PAIN MANAGEMENT
     Dosage: UNK UNK, PRN
  8. DORYX [Concomitant]
     Indication: ACNE
  9. TRAMADOL HCL [Concomitant]
     Dosage: UNK UNK, PRN

REACTIONS (9)
  - DEEP VEIN THROMBOSIS [None]
  - LUNG INFILTRATION [None]
  - ATELECTASIS [None]
  - DYSPNOEA [None]
  - CHEST PAIN [None]
  - PAIN [None]
  - PULMONARY EMBOLISM [None]
  - INJURY [None]
  - CHEST DISCOMFORT [None]
